FAERS Safety Report 8374201-4 (Version None)
Quarter: 2012Q2

REPORT INFORMATION
  Report Type: 
  Country: None (occurrence: None)
  Receive Date: 20120521
  Receipt Date: 20120511
  Transmission Date: 20120825
  Serious: Yes (Hospitalization, Disabling, Other)
  Sender: FDA-Public Use
  Company Number: US-MERCK-1107USA03281

PATIENT
  Age: 68 Year
  Sex: Female
  Weight: 65 kg

DRUGS (3)
  1. NEXIUM [Concomitant]
     Indication: GASTROOESOPHAGEAL REFLUX DISEASE
     Route: 065
     Dates: start: 19950101
  2. FOSAMAX [Suspect]
     Indication: OSTEOPOROSIS
     Route: 048
     Dates: start: 20000101, end: 20080610
  3. FOSAMAX [Suspect]
     Route: 048
     Dates: start: 20080201, end: 20080601

REACTIONS (56)
  - FEMUR FRACTURE [None]
  - FRACTURE NONUNION [None]
  - MYOSITIS [None]
  - MUSCULOSKELETAL PAIN [None]
  - UPPER-AIRWAY COUGH SYNDROME [None]
  - HYPERPARATHYROIDISM [None]
  - HIATUS HERNIA [None]
  - HAEMATURIA [None]
  - LIGAMENT SPRAIN [None]
  - CATARACT [None]
  - PAIN [None]
  - VISION BLURRED [None]
  - AORTIC ANEURYSM [None]
  - ANAEMIA [None]
  - AORTIC DILATATION [None]
  - PAIN IN EXTREMITY [None]
  - NAUSEA [None]
  - MYALGIA [None]
  - RASH [None]
  - INTERVERTEBRAL DISC DEGENERATION [None]
  - HYPERGAMMAGLOBULINAEMIA BENIGN MONOCLONAL [None]
  - URTICARIA [None]
  - THYROID DISORDER [None]
  - RED BLOOD CELL SEDIMENTATION RATE INCREASED [None]
  - BLOOD CALCIUM INCREASED [None]
  - RENAL FAILURE CHRONIC [None]
  - FALL [None]
  - MENTAL STATUS CHANGES [None]
  - ADVERSE DRUG REACTION [None]
  - BALANCE DISORDER [None]
  - ABDOMINAL DISTENSION [None]
  - HYPERCALCAEMIA [None]
  - GROIN PAIN [None]
  - ARTERIOSCLEROSIS [None]
  - BLOOD PARATHYROID HORMONE INCREASED [None]
  - SCIATICA [None]
  - BLOOD CHOLESTEROL INCREASED [None]
  - EPICONDYLITIS [None]
  - CONFUSIONAL STATE [None]
  - DEVICE FAILURE [None]
  - PARATHYROID DISORDER [None]
  - ARTHRALGIA [None]
  - BURSITIS [None]
  - CARDIAC MURMUR [None]
  - HERPES ZOSTER [None]
  - POLYMYALGIA RHEUMATICA [None]
  - ROTATOR CUFF SYNDROME [None]
  - LOW TURNOVER OSTEOPATHY [None]
  - HAEMORRHAGIC ANAEMIA [None]
  - ALOPECIA AREATA [None]
  - OSTEONECROSIS [None]
  - VITAMIN D DEFICIENCY [None]
  - TENDONITIS [None]
  - SPINAL OSTEOARTHRITIS [None]
  - LICHEN PLANUS [None]
  - JOINT EFFUSION [None]
